FAERS Safety Report 8772629 (Version 1)
Quarter: 2012Q4

REPORT INFORMATION
  Report Type: 
  Country: US (occurrence: US)
  Receive Date: 20120830
  Receipt Date: 20120830
  Transmission Date: 20130627
  Serious: Yes (Hospitalization, Other)
  Sender: FDA-Public Use
  Company Number: US-ELI_LILLY_AND_COMPANY-US201105001952

PATIENT
  Age: 73 Year
  Sex: Female

DRUGS (4)
  1. FORTEO [Suspect]
     Indication: OSTEOPOROSIS
     Dosage: 20 ug, qd
     Route: 058
  2. FORTEO [Suspect]
     Dosage: 20 ug, qd
     Route: 058
  3. FORTEO [Suspect]
     Dosage: 20 ug, qd
     Route: 058
  4. FORTEO [Suspect]
     Dosage: 20 ug, qd
     Route: 058

REACTIONS (13)
  - Femur fracture [Recovering/Resolving]
  - Pigmentation disorder [Unknown]
  - Blood potassium decreased [Unknown]
  - Muscular weakness [Unknown]
  - Fatigue [Unknown]
  - Fall [Unknown]
  - Arthropathy [Not Recovered/Not Resolved]
  - Pain [Unknown]
  - Arthralgia [Not Recovered/Not Resolved]
  - Dizziness [Recovered/Resolved]
  - Arthralgia [Recovered/Resolved]
  - Injection site bruising [Not Recovered/Not Resolved]
  - Injection site pain [Unknown]
